FAERS Safety Report 7081788-0 (Version None)
Quarter: 2010Q4

REPORT INFORMATION
  Report Type: 
  Country: None (occurrence: None)
  Receive Date: 20101025
  Receipt Date: 20101011
  Transmission Date: 20110411
  Serious: Yes (Other)
  Sender: FDA-Public Use
  Company Number: SE-1183753

PATIENT

DRUGS (1)
  1. BSS PLUS [Suspect]
     Dosage: INTRAOCULAR
     Route: 031
     Dates: start: 20100101

REACTIONS (2)
  - ENDOPHTHALMITIS [None]
  - STAPHYLOCOCCAL INFECTION [None]
